FAERS Safety Report 10347997 (Version 1)
Quarter: 2014Q3

REPORT INFORMATION
  Report Type: Spontaneous
  Country: BE (occurrence: BE)
  Receive Date: 20140729
  Receipt Date: 20140729
  Transmission Date: 20150326
  Serious: Yes (Other)
  Sender: FDA-Public Use
  Company Number: BE-ROXANE LABORATORIES, INC.-2014-RO-01121RO

PATIENT
  Age: 44 Year
  Sex: Male

DRUGS (1)
  1. AZATHIOPRINE. [Suspect]
     Active Substance: AZATHIOPRINE
     Indication: CROHN^S DISEASE
     Route: 065

REACTIONS (4)
  - Hepatic cirrhosis [Unknown]
  - Nodular regenerative hyperplasia [Unknown]
  - Pancytopenia [Unknown]
  - Portal hypertension [Unknown]
